FAERS Safety Report 19713339 (Version 1)
Quarter: 2021Q3

REPORT INFORMATION
  Report Type: Report from Study
  Country: US (occurrence: US)
  Receive Date: 20210817
  Receipt Date: 20210817
  Transmission Date: 20211014
  Serious: Yes (Other)
  Sender: FDA-Public Use
  Company Number: US-JAZZ-2021-US-002905

PATIENT
  Age: 50 Year
  Sex: Female

DRUGS (6)
  1. MUCINEX [Suspect]
     Active Substance: GUAIFENESIN
     Indication: PRODUCT USED FOR UNKNOWN INDICATION
  2. SUNOSI [Concomitant]
     Active Substance: SOLRIAMFETOL
     Indication: PRODUCT USED FOR UNKNOWN INDICATION
  3. XYREM [Suspect]
     Active Substance: SODIUM OXYBATE
     Indication: NARCOLEPSY
     Dosage: 2.25 GRAM, BID
     Route: 048
     Dates: start: 20210213
  4. XYREM [Suspect]
     Active Substance: SODIUM OXYBATE
     Dosage: 3.75 GRAM, BID
     Route: 048
     Dates: start: 20210220, end: 20210221
  5. XYREM [Suspect]
     Active Substance: SODIUM OXYBATE
     Dosage: 4 GRAM, BID
     Route: 048
     Dates: start: 20210222
  6. XYREM [Suspect]
     Active Substance: SODIUM OXYBATE
     Indication: CATAPLEXY
     Dosage: 3 GRAM, BID
     Route: 048
     Dates: start: 202102, end: 202102

REACTIONS (20)
  - Rash pruritic [Unknown]
  - Dyspnoea [Unknown]
  - Headache [Unknown]
  - Fall [Recovered/Resolved]
  - Tremor [Unknown]
  - Condition aggravated [Unknown]
  - Pre-existing condition improved [Unknown]
  - Bone pain [Unknown]
  - Feeling jittery [Unknown]
  - Disorientation [Unknown]
  - Agitation [Unknown]
  - Eye swelling [Unknown]
  - Paraesthesia [Unknown]
  - Vision blurred [Unknown]
  - Therapeutic response unexpected [Unknown]
  - Depression [Recovering/Resolving]
  - Feeling drunk [Unknown]
  - Suicidal ideation [Recovered/Resolved]
  - Muscle spasms [Unknown]
  - Anxiety [Unknown]

NARRATIVE: CASE EVENT DATE: 202102
